FAERS Safety Report 5071836-1 (Version None)
Quarter: 2006Q3

REPORT INFORMATION
  Report Type: 
  Country: None (occurrence: None)
  Receive Date: 20060801
  Receipt Date: 20060725
  Transmission Date: 20061208
  Serious: Yes (Hospitalization)
  Sender: FDA-Public Use
  Company Number: 200610886BYL

PATIENT
  Age: 91 Year
  Sex: Female
  Weight: 39.6 kg

DRUGS (8)
  1. AVELOX [Suspect]
     Indication: PNEUMONIA
     Dosage: 400 MG QD ORAL
     Route: 048
     Dates: start: 20060614, end: 20060628
  2. BLOPRESS [Concomitant]
  3. ROCALTROL [Concomitant]
  4. MUCODYNE [Concomitant]
  5. SELBEX [Concomitant]
  6. 8-HOUR BAYER [Concomitant]
  7. LASIX [Concomitant]
  8. ALLOPURINOL [Concomitant]

REACTIONS (1)
  - TOXIC EPIDERMAL NECROLYSIS [None]
